FAERS Safety Report 9183673 (Version 1)
Quarter: 2013Q1

REPORT INFORMATION
  Report Type: Spontaneous
  Country: US (occurrence: US)
  Receive Date: 20130322
  Receipt Date: 20130322
  Transmission Date: 20140127
  Serious: No
  Sender: FDA-Public Use
  Company Number: US-BRISTOL-MYERS SQUIBB COMPANY-16580946

PATIENT
  Age: 83 Year
  Sex: Male

DRUGS (8)
  1. ERBITUX [Suspect]
     Indication: HEAD AND NECK CANCER
  2. NORVASC [Concomitant]
  3. NEXIUM [Concomitant]
  4. LIPITOR [Concomitant]
  5. TAXOL [Concomitant]
  6. QUINIDINE [Concomitant]
  7. SPIRIVA [Concomitant]
  8. PRADAXA [Concomitant]

REACTIONS (3)
  - Asthenia [Not Recovered/Not Resolved]
  - Pain in extremity [Not Recovered/Not Resolved]
  - Dysstasia [Not Recovered/Not Resolved]
